FAERS Safety Report 9321107 (Version 1)
Quarter: 2013Q2

REPORT INFORMATION
  Report Type: Spontaneous
  Country: US (occurrence: None)
  Receive Date: 20130530
  Receipt Date: 20130530
  Transmission Date: 20140414
  Serious: Yes (Life-Threatening, Hospitalization)
  Sender: FDA-Public Use
  Company Number: None

PATIENT
  Age: 80 Year
  Sex: Female
  Weight: 74.84 kg

DRUGS (10)
  1. VENOFER [Suspect]
     Indication: ANAEMIA
     Dosage: IV INFUSION
     Route: 042
     Dates: start: 20130426, end: 20130426
  2. LOTENSIN [Concomitant]
  3. ALTOCOR [Concomitant]
  4. BONIVA [Concomitant]
  5. B-12 [Concomitant]
  6. D3 [Concomitant]
  7. RESTASIS [Concomitant]
  8. WARFIN [Concomitant]
  9. MULTI-VTIAMIN [Concomitant]
  10. CALCIUM [Concomitant]

REACTIONS (8)
  - Loss of consciousness [None]
  - Fall [None]
  - Swelling [None]
  - Dyspnoea [None]
  - Red blood cell count decreased [None]
  - Thrombosis [None]
  - Pulmonary oedema [None]
  - Infusion related reaction [None]
